FAERS Safety Report 19528069 (Version 2)
Quarter: 2021Q3

REPORT INFORMATION
  Report Type: Spontaneous
  Country: JP (occurrence: JP)
  Receive Date: 20210713
  Receipt Date: 20210722
  Transmission Date: 20211014
  Serious: Yes (Death, Other)
  Sender: FDA-Public Use
  Company Number: JP-TAKEDA-2021TJP054684

PATIENT
  Age: 56 Year
  Sex: Male

DRUGS (1)
  1. TRINTELLIX [Suspect]
     Active Substance: VORTIOXETINE HYDROBROMIDE
     Indication: DEPRESSION
     Dosage: 10 MILLIGRAM
     Route: 048
     Dates: start: 202103, end: 202106

REACTIONS (3)
  - Feeding disorder [Fatal]
  - Pneumonia [Fatal]
  - Starvation [Fatal]

NARRATIVE: CASE EVENT DATE: 202106
